FAERS Safety Report 8599455-0 (Version None)
Quarter: 2012Q3

REPORT INFORMATION
  Report Type: 
  Country: None (occurrence: None)
  Receive Date: 20120816
  Receipt Date: 20120810
  Transmission Date: 20120928
  Serious: Yes (Other)
  Sender: FDA-Public Use
  Company Number: US-BAYER-2012-083053

PATIENT
  Sex: Female

DRUGS (1)
  1. MIRENA [Suspect]
     Dosage: 20 MCG/24HR, CONT
     Route: 015

REACTIONS (11)
  - PANIC ATTACK [None]
  - ANXIETY [None]
  - FATIGUE [None]
  - DEPRESSION [None]
  - WEIGHT DECREASED [None]
  - CHEST PAIN [None]
  - ALOPECIA [None]
  - BACK PAIN [None]
  - PALPITATIONS [None]
  - FEELING ABNORMAL [None]
  - IRRITABILITY [None]
